FAERS Safety Report 19898779 (Version 2)
Quarter: 2022Q1

REPORT INFORMATION
  Report Type: Spontaneous
  Country: CA (occurrence: HT)
  Receive Date: 20210930
  Receipt Date: 20220318
  Transmission Date: 20220423
  Serious: Yes (Hospitalization, Other)
  Sender: FDA-Public Use
  Company Number: CA-SA-SAC20210927000208

PATIENT
  Age: 79 Year
  Sex: Female
  Weight: 74 kg

DRUGS (14)
  1. ZANTAC [Suspect]
     Active Substance: RANITIDINE HYDROCHLORIDE
     Indication: Pneumonia
     Dosage: UNK
  2. INSULIN NOS [Suspect]
     Active Substance: INSULIN NOS
  3. PREDNISONE [Suspect]
     Active Substance: PREDNISONE
  4. HYDRALAZINE [Suspect]
     Active Substance: HYDRALAZINE HYDROCHLORIDE
  5. SODIUM BICARBONATE [Suspect]
     Active Substance: SODIUM BICARBONATE
  6. ATOVAQUONE [Suspect]
     Active Substance: ATOVAQUONE
     Dosage: 1500 MG , Q24H, ORAL
     Route: 048
  7. POLYSTYRENE SULFONIC ACID [Suspect]
     Active Substance: POLYSTYRENE SULFONIC ACID
  8. FUROSEMIDE [Concomitant]
     Active Substance: FUROSEMIDE
  9. ATOVAQUONE [Concomitant]
     Active Substance: ATOVAQUONE
  10. HYDRALAZINE [Concomitant]
     Active Substance: HYDRALAZINE HYDROCHLORIDE
  11. INSULIN NOS [Concomitant]
     Active Substance: INSULIN NOS
  12. SODIUM POLYSTYRENE SULFONATE [Concomitant]
     Active Substance: SODIUM POLYSTYRENE SULFONATE
  13. PREDNISONE [Concomitant]
     Active Substance: PREDNISONE
  14. SODIUM BICARBONATE [Concomitant]
     Active Substance: SODIUM BICARBONATE

REACTIONS (1)
  - Thrombocytopenia [Recovering/Resolving]

NARRATIVE: CASE EVENT DATE: 20210123
